FAERS Safety Report 8770115 (Version 2)
Quarter: 2012Q4

REPORT INFORMATION
  Report Type: Report from Study
  Country: JP (occurrence: JP)
  Receive Date: 20120905
  Receipt Date: 20120905
  Transmission Date: 20130627
  Serious: Yes (Hospitalization)
  Sender: FDA-Public Use
  Company Number: JP-009507513-1206USA02398

PATIENT

DRUGS (24)
  1. ZOLINZA CAPSULES 100MG [Suspect]
     Dosage: 200 mg, qd
     Route: 048
     Dates: start: 20111114, end: 20111123
  2. ZOLINZA CAPSULES 100MG [Suspect]
     Dosage: 200 mg, qd
     Route: 048
     Dates: start: 20111201, end: 20111211
  3. ZOLINZA CAPSULES 100MG [Suspect]
     Dosage: 100 mg, qd
     Route: 048
     Dates: start: 20111220, end: 20111222
  4. ZOLINZA CAPSULES 100MG [Suspect]
     Dosage: 200 mg, qd
     Route: 048
     Dates: start: 20111223, end: 20111228
  5. ZOLINZA CAPSULES 100MG [Suspect]
     Dosage: 100 mg, qd
     Route: 048
     Dates: start: 20120105, end: 20120112
  6. ZOLINZA CAPSULES 100MG [Suspect]
     Dosage: 200 mg, qd
     Route: 048
     Dates: start: 20120301, end: 20120309
  7. ZOLINZA CAPSULES 100MG [Suspect]
     Dosage: 200 mg, qd
     Route: 048
     Dates: start: 20120313, end: 20120316
  8. ZOLINZA CAPSULES 100MG [Suspect]
     Dosage: 200 mg, qd
     Route: 048
     Dates: start: 20120413, end: 20120415
  9. VELCADE [Suspect]
     Indication: ANAPLASTIC LARGE CELL LYMPHOMA T- AND NULL-CELL TYPES
     Dosage: 2.2 mg, qd
     Route: 042
     Dates: start: 20120313, end: 20120413
  10. DECADRON PHOSPHATE INJECTION [Concomitant]
     Indication: ANAPLASTIC LARGE CELL LYMPHOMA T- AND NULL-CELL TYPES
     Dosage: 33 mg, qd
     Route: 051
     Dates: start: 20111018, end: 20111021
  11. DECADRON PHOSPHATE INJECTION [Concomitant]
     Dosage: 33 mg, qd
     Route: 051
     Dates: start: 20120131, end: 20120413
  12. TAKEPRON [Concomitant]
     Indication: GASTROOESOPHAGEAL REFLUX DISEASE
     Dosage: 15 mg, qd
     Route: 048
     Dates: end: 20120418
  13. URINORM [Concomitant]
     Indication: HYPERURICAEMIA
     Dosage: 50 mg, qd
     Route: 048
     Dates: end: 20120418
  14. TOUGHMAC E [Concomitant]
     Indication: DYSPEPSIA
     Dosage: 1 DF, tid
     Route: 048
  15. MUCOSTA [Concomitant]
     Indication: GASTRITIS
     Dosage: 100 mg, tid
     Route: 048
     Dates: end: 20120418
  16. DECADRON (DEXAMETHASONE) [Concomitant]
     Indication: ANAPLASTIC LARGE CELL LYMPHOMA T- AND NULL-CELL TYPES
     Dosage: 10 mg, qd
     Route: 048
     Dates: start: 20111101, end: 20111104
  17. DECADRON (DEXAMETHASONE) [Concomitant]
     Dosage: 10 mg, qd
     Route: 048
     Dates: start: 20111212
  18. GENINAX [Concomitant]
     Indication: BRONCHOPNEUMONIA
     Dosage: 400 mg, qd
     Route: 048
     Dates: start: 20111117, end: 20111121
  19. MYSLEE [Concomitant]
     Indication: INSOMNIA
     Dosage: 10 mg, qd
     Route: 048
  20. PREDONINE [Concomitant]
     Indication: ANAPLASTIC LARGE CELL LYMPHOMA T- AND NULL-CELL TYPES
     Dosage: 10 mg, qd
     Route: 048
     Dates: start: 20120123, end: 20120402
  21. BAKTAR [Concomitant]
     Indication: PROPHYLAXIS
     Dosage: 1 DF, qd
     Route: 048
     Dates: end: 20120319
  22. PROCARBAZINE [Concomitant]
     Indication: ANAPLASTIC LARGE CELL LYMPHOMA T- AND NULL-CELL TYPES
     Dosage: 100 mg, qd
     Route: 048
     Dates: start: 20120113, end: 20120130
  23. BENET [Concomitant]
     Indication: OSTEOPOROSIS
     Dosage: 17.5 mg, qd
     Route: 048
     Dates: start: 20120130, end: 20120410
  24. ORGARAN INTRAVENOUS 1250 UNITS [Concomitant]
     Indication: DISSEMINATED INTRAVASCULAR COAGULATION
     Dosage: 1250 IU, bid
     Route: 042
     Dates: start: 20120229, end: 20120415

REACTIONS (7)
  - Thrombocytopenia [Recovering/Resolving]
  - None [Recovering/Resolving]
  - Platelet count decreased [Recovering/Resolving]
  - Neutrophil count decreased [Recovering/Resolving]
  - Diarrhoea [Recovered/Resolved]
  - Anaemia [Recovering/Resolving]
  - Lymphopenia [Recovering/Resolving]
